FAERS Safety Report 8618659-1 (Version None)
Quarter: 2012Q3

REPORT INFORMATION
  Report Type: 
  Country: None (occurrence: None)
  Receive Date: 20120824
  Receipt Date: 20120803
  Transmission Date: 20120928
  Serious: Yes (Death, Hospitalization)
  Sender: FDA-Public Use
  Company Number: US-AMGEN-KDL422792

PATIENT
  Age: 72 Year
  Sex: Male

DRUGS (4)
  1. ENBREL [Suspect]
     Indication: RHEUMATOID ARTHRITIS
     Dosage: UNK UNK, 2 TIMES/WK
     Dates: start: 20040116
  2. PREDNISONE TAB [Concomitant]
     Dosage: UNK
  3. PROCRIT [Suspect]
     Dosage: UNK
  4. METHOTREXATE [Concomitant]
     Dosage: UNK

REACTIONS (2)
  - HEART RATE INCREASED [None]
  - LUNG CARCINOMA CELL TYPE UNSPECIFIED STAGE IV [None]
